FAERS Safety Report 6683315-6 (Version None)
Quarter: 2010Q2

REPORT INFORMATION
  Report Type: 
  Country: None (occurrence: None)
  Receive Date: 20100415
  Receipt Date: 20100401
  Transmission Date: 20101027
  Serious: Yes (Other)
  Sender: FDA-Public Use
  Company Number: PHEH2009US02426

PATIENT
  Sex: Female

DRUGS (3)
  1. ZOMETA [Suspect]
     Indication: NEOPLASM MALIGNANT
     Dosage: UNK
  2. ZOMETA [Suspect]
     Indication: METASTASES TO BONE
  3. TAXOTERE [Concomitant]
     Indication: BREAST CANCER

REACTIONS (22)
  - ABSCESS DRAINAGE [None]
  - ANHEDONIA [None]
  - ANXIETY [None]
  - BONE DISORDER [None]
  - BONE EROSION [None]
  - DEBRIDEMENT [None]
  - DEFORMITY [None]
  - DYSPHAGIA [None]
  - EMOTIONAL DISTRESS [None]
  - INFECTION [None]
  - INJURY [None]
  - JAW FRACTURE [None]
  - LIFE EXPECTANCY SHORTENED [None]
  - MASTECTOMY [None]
  - NODULE [None]
  - ORAL DISCOMFORT [None]
  - OSTEONECROSIS [None]
  - OSTEOSCLEROSIS [None]
  - PAIN [None]
  - PHYSICAL DISABILITY [None]
  - SKIN PAPILLOMA [None]
  - TOOTH DISORDER [None]
